FAERS Safety Report 15201397 (Version 1)
Quarter: 2018Q3

REPORT INFORMATION
  Report Type: Spontaneous
  Country: US (occurrence: US)
  Receive Date: 20180726
  Receipt Date: 20180726
  Transmission Date: 20181010
  Serious: Yes (Hospitalization, Other)
  Sender: FDA-Public Use
  Company Number: US-TORRENT-00006579

PATIENT
  Age: 32 Year
  Sex: Female

DRUGS (3)
  1. LEVOFLOXACIN. [Interacting]
     Active Substance: LEVOFLOXACIN
     Indication: TUBERCULOSIS
     Dosage: UNKNOWN
  2. ETHAMBUTOL HYDROCHLORIDE. [Interacting]
     Active Substance: ETHAMBUTOL HYDROCHLORIDE
     Indication: TUBERCULOSIS
     Dosage: UNKNOWN
  3. CAPREOMYCIN SULFATE [Suspect]
     Active Substance: CAPREOMYCIN SULFATE
     Indication: TUBERCULOSIS
     Dosage: UNKNOWN

REACTIONS (2)
  - Hepatitis B reactivation [Recovered/Resolved]
  - Drug interaction [Recovered/Resolved]
